FAERS Safety Report 7190608-5 (Version None)
Quarter: 2010Q4

REPORT INFORMATION
  Report Type: 
  Country: None (occurrence: None)
  Receive Date: 20101221
  Receipt Date: 20101221
  Transmission Date: 20110411
  Serious: Yes (Death, Life-Threatening, Hospitalization)
  Sender: FDA-Public Use
  Company Number: None

PATIENT
  Age: 86 Year
  Sex: Female
  Weight: 61.2356 kg

DRUGS (3)
  1. AMBIEN [Suspect]
     Indication: ANXIETY
     Dosage: ONE TAB DAILY @ BEDTIME PO
     Route: 048
     Dates: start: 20010101, end: 20070901
  2. AMBIEN [Suspect]
     Indication: DEPRESSION
     Dosage: ONE TAB DAILY @ BEDTIME PO
     Route: 048
     Dates: start: 20010101, end: 20070901
  3. AMBIEN [Suspect]
     Indication: INSOMNIA
     Dosage: ONE TAB DAILY @ BEDTIME PO
     Route: 048
     Dates: start: 20010101, end: 20070901

REACTIONS (6)
  - AMNESIA [None]
  - CEREBROVASCULAR ACCIDENT [None]
  - FALL [None]
  - MYOCARDIAL INFARCTION [None]
  - SLEEP-RELATED EATING DISORDER [None]
  - SOMNAMBULISM [None]
